FAERS Safety Report 4852263-6 (Version None)
Quarter: 2005Q4

REPORT INFORMATION
  Report Type: 
  Country: None (occurrence: None)
  Receive Date: 20051213
  Receipt Date: 20051005
  Transmission Date: 20060501
  Serious: Yes (Hospitalization, Other)
  Sender: FDA-Public Use
  Company Number: US-MERCK-0510USA04513

PATIENT
  Age: 62 Year
  Sex: Female
  Weight: 110 kg

DRUGS (4)
  1. VIOXX [Suspect]
     Indication: OSTEOARTHRITIS
     Route: 048
     Dates: start: 19990101, end: 20040901
  2. AVANDIA [Concomitant]
     Indication: DIABETES MELLITUS
     Route: 065
  3. LIPITOR [Concomitant]
     Route: 065
  4. VITAMINS (UNSPECIFIED) [Concomitant]
     Route: 065

REACTIONS (8)
  - ARTHROPATHY [None]
  - CEREBROVASCULAR ACCIDENT [None]
  - CORONARY ARTERY DISEASE [None]
  - DROP ATTACKS [None]
  - DYSPNOEA EXERTIONAL [None]
  - HYPERHIDROSIS [None]
  - POST-TRAUMATIC STRESS DISORDER [None]
  - TRANSIENT ISCHAEMIC ATTACK [None]
